FAERS Safety Report 21820654 (Version 3)
Quarter: 2023Q1

REPORT INFORMATION
  Report Type: Report from Study
  Country: US (occurrence: None)
  Receive Date: 20230105
  Receipt Date: 20230126
  Transmission Date: 20230417
  Serious: Yes (Hospitalization, Other)
  Sender: FDA-Public Use
  Company Number: US-ROCHE-3253763

PATIENT
  Age: 74 Year
  Sex: Male

DRUGS (5)
  1. ATEZOLIZUMAB [Suspect]
     Active Substance: ATEZOLIZUMAB
     Indication: Chronic lymphocytic leukaemia
     Dosage: LAST DOSES OF ATEZOLIZUMAB WERE ON 21/DEC/2022 AND 22/DEC/2022.?OVER 30-60 MINUTES ON DAYS 3-4 OF CY
     Route: 041
  2. OBINUTUZUMAB [Suspect]
     Active Substance: OBINUTUZUMAB
     Indication: Chronic lymphocytic leukaemia
     Dosage: LAST DOSES OF OBINUTUZUMAB WERE 19/DEC/2022 AND 20/DEC/2022.? OVER 4-6 HOURS ON DAYS 1, 2, 8, AND 15
     Route: 042
  3. VENETOCLAX [Suspect]
     Active Substance: VENETOCLAX
     Indication: Chronic lymphocytic leukaemia
     Dosage: ON DAYS 1-28.
     Route: 048
  4. BRILINTA [Concomitant]
     Active Substance: TICAGRELOR
  5. ASPIRIN [Concomitant]
     Active Substance: ASPIRIN

REACTIONS (3)
  - Confusional state [Recovered/Resolved]
  - Thrombocytopenia [Unknown]
  - Neutropenia [Unknown]

NARRATIVE: CASE EVENT DATE: 20221222
